FAERS Safety Report 16824785 (Version 1)
Quarter: 2019Q3

REPORT INFORMATION
  Report Type: Spontaneous
  Country: CN (occurrence: CN)
  Receive Date: 20190918
  Receipt Date: 20190918
  Transmission Date: 20191005
  Serious: Yes (Other)
  Sender: FDA-Public Use
  Company Number: CN-BAXTER-2019BAX018080

PATIENT
  Age: 63 Year
  Sex: Female
  Weight: 52 kg

DRUGS (18)
  1. ENDOXAN [Suspect]
     Active Substance: CYCLOPHOSPHAMIDE
     Indication: BREAST CANCER FEMALE
     Dosage: FIRST CHEMOTHERAPY, DILUTED WITH SODIUM CHLORIDE (NS)
     Route: 042
  2. 0.9% SODIUM CHLORIDE INJECTION [Suspect]
     Active Substance: SODIUM CHLORIDE
     Dosage: SECOND CHEMOTHERAPY, DILUENT FOR ENDOXAN OF 750 MG
     Route: 042
     Dates: start: 20190729, end: 20190729
  3. 0.9% SODIUM CHLORIDE INJECTION [Suspect]
     Active Substance: SODIUM CHLORIDE
     Dosage: FIRST CHEMOTHERAPY, DILUENT FOR AIDASHENG
     Route: 041
  4. 0.9% SODIUM CHLORIDE INJECTION [Suspect]
     Active Substance: SODIUM CHLORIDE
     Dosage: DOSE RE-INTRODUCTION, DILUENT FOR AIDASHENG
     Route: 041
  5. ENDOXAN [Suspect]
     Active Substance: CYCLOPHOSPHAMIDE
     Dosage: SECOND CHEMOTHERAPY, DILUTED WITH SODIUM CHLORIDE (NS) OF 40 ML
     Route: 042
     Dates: start: 20190729, end: 20190729
  6. 0.9% SODIUM CHLORIDE INJECTION [Suspect]
     Active Substance: SODIUM CHLORIDE
     Dosage: FIRST CHEMOTHERAPY, DILUENT FOR AISU
     Route: 041
  7. 0.9% SODIUM CHLORIDE INJECTION [Suspect]
     Active Substance: SODIUM CHLORIDE
     Dosage: DOSE RE-INTRODUCTION, DILUENT FOR AISU
     Route: 041
  8. AISU [Suspect]
     Active Substance: DOCETAXEL
     Indication: BREAST CANCER FEMALE
     Dosage: FIRST CHEMOTHERAPY, DILUTED WITH SODIUM CHLORIDE [NS]
     Route: 041
  9. ENDOXAN [Suspect]
     Active Substance: CYCLOPHOSPHAMIDE
     Dosage: DOSE RE-INTRODUCTION, DILUTED WITH SODIUM CHLORIDE (NS)
     Route: 042
  10. AISU [Suspect]
     Active Substance: DOCETAXEL
     Dosage: SECOND CHEMOTHERAPY, DILUTED WITH SODIUM CHLORIDE [NS] OF 250 ML
     Route: 041
     Dates: start: 20190729, end: 20190729
  11. 0.9% SODIUM CHLORIDE INJECTION [Suspect]
     Active Substance: SODIUM CHLORIDE
     Indication: MEDICATION DILUTION
     Dosage: FIRST CHEMOTHERAPY, DILUENT FOR ENDOXAN
     Route: 042
  12. 0.9% SODIUM CHLORIDE INJECTION [Suspect]
     Active Substance: SODIUM CHLORIDE
     Dosage: DOSE RE-INTRODUCTION, DILUENT FOR ENDOXAN
     Route: 042
  13. AISU [Suspect]
     Active Substance: DOCETAXEL
     Dosage: DOSE RE-INTRODUCTION, DILUTED WITH SODIUM CHLORIDE [NS]
     Route: 041
  14. AIDASHENG [Suspect]
     Active Substance: EPIRUBICIN HYDROCHLORIDE
     Dosage: DOSE RE-INTRODUCTION, DILUTED WITH SODIUM CHLORIDE [NS]
     Route: 041
  15. 0.9% SODIUM CHLORIDE INJECTION [Suspect]
     Active Substance: SODIUM CHLORIDE
     Dosage: SECOND CHEMOTHERAPY, DILUENT FOR AIDASHENG OF 108 MG
     Route: 041
     Dates: start: 20190729, end: 20190729
  16. 0.9% SODIUM CHLORIDE INJECTION [Suspect]
     Active Substance: SODIUM CHLORIDE
     Dosage: SECOND CHEMOTHERAPY, DILUENT FOR AISU OF 108 MG
     Route: 041
     Dates: start: 20190729, end: 20190729
  17. AIDASHENG [Suspect]
     Active Substance: EPIRUBICIN HYDROCHLORIDE
     Indication: BREAST CANCER FEMALE
     Dosage: FIRST CHEMOTHERAPY, DILUTED WITH SODIUM CHLORIDE [NS]
     Route: 041
  18. AIDASHENG [Suspect]
     Active Substance: EPIRUBICIN HYDROCHLORIDE
     Dosage: SECOND CHEMOTHERAPY, DILUTED WITH SODIUM CHLORIDE [NS] OF 100 ML
     Route: 041
     Dates: start: 20190729, end: 20190729

REACTIONS (2)
  - Leukopenia [Recovered/Resolved]
  - Agranulocytosis [Recovered/Resolved]

NARRATIVE: CASE EVENT DATE: 20190805
